FAERS Safety Report 9641821 (Version 1)
Quarter: 2013Q4

REPORT INFORMATION
  Report Type: Spontaneous
  Country: EG (occurrence: EG)
  Receive Date: 20131023
  Receipt Date: 20131023
  Transmission Date: 20140711
  Serious: Yes (Death, Other)
  Sender: FDA-Public Use
  Company Number: EG-SA-2013SA105759

PATIENT
  Age: 15 Year
  Sex: Female
  Weight: 46 kg

DRUGS (1)
  1. CEREZYME [Suspect]
     Indication: GAUCHER^S DISEASE
     Route: 042
     Dates: start: 20000125, end: 20131002

REACTIONS (4)
  - Death [Fatal]
  - Mitral valve replacement [Unknown]
  - Hepatitis A [Unknown]
  - Cardiac disorder [Unknown]
